FAERS Safety Report 4981886-9 (Version None)
Quarter: 2006Q2

REPORT INFORMATION
  Report Type: 
  Country: None (occurrence: None)
  Receive Date: 20060425
  Receipt Date: 20060414
  Transmission Date: 20061013
  Serious: Yes (Hospitalization)
  Sender: FDA-Public Use
  Company Number: FR-JNJFOC-20060401146

PATIENT
  Age: 90 Year
  Sex: Female

DRUGS (1)
  1. REMICADE [Suspect]
     Indication: CROHN'S DISEASE
     Route: 042

REACTIONS (5)
  - ASCITES [None]
  - PLEURISY [None]
  - POLYSEROSITIS [None]
  - PYREXIA [None]
  - TUBERCULOSIS [None]
